FAERS Safety Report 6978185-2 (Version None)
Quarter: 2010Q3

REPORT INFORMATION
  Report Type: 
  Country: None (occurrence: None)
  Receive Date: 20100913
  Receipt Date: 20100903
  Transmission Date: 20110219
  Serious: Yes (Hospitalization, Other)
  Sender: FDA-Public Use
  Company Number: US-ASTRAZENECA-2010SE36874

PATIENT
  Age: 17653 Day
  Sex: Male
  Weight: 102.1 kg

DRUGS (2)
  1. CRESTOR [Suspect]
     Indication: HYPERCHOLESTEROLAEMIA
     Route: 048
     Dates: start: 20090801
  2. CRESTOR [Suspect]
     Route: 048
     Dates: start: 20100107, end: 20100804

REACTIONS (3)
  - CARDIAC OPERATION [None]
  - CHEST PAIN [None]
  - VISUAL IMPAIRMENT [None]
